FAERS Safety Report 18431089 (Version 1)
Quarter: 2020Q4

REPORT INFORMATION
  Report Type: Spontaneous
  Country: US (occurrence: US)
  Receive Date: 20201027
  Receipt Date: 20201027
  Transmission Date: 20210114
  Serious: Yes (Hospitalization)
  Sender: FDA-Public Use
  Company Number: None

PATIENT
  Age: 52 Year
  Sex: Female

DRUGS (13)
  1. HYDROCHLOROT, [Concomitant]
  2. GLEEVEC [Suspect]
     Active Substance: IMATINIB MESYLATE
     Indication: PRODUCT USED FOR UNKNOWN INDICATION
     Route: 048
     Dates: start: 20200805
  3. DIVIGEL, [Concomitant]
  4. FERROUG GLUC, [Concomitant]
  5. IMATINB, [Concomitant]
  6. PANTORAZOLE [Concomitant]
  7. ONDANSETRON ODT 8MG [Suspect]
     Active Substance: ONDANSETRON
     Indication: PRODUCT USED FOR UNKNOWN INDICATION
     Dosage: ?          OTHER ROUTE:DISSOLVE TONGUE?
     Route: 060
     Dates: start: 20190821
  8. ENOXAPARIN, [Concomitant]
  9. CYCLOBENZAPRINE, [Concomitant]
  10. ONDANSETRON, [Concomitant]
  11. MELOXICAM, [Concomitant]
  12. CLONDINE, [Concomitant]
  13. MUPIROCIN, [Concomitant]

REACTIONS (2)
  - Therapy interrupted [None]
  - Gastric operation [None]

NARRATIVE: CASE EVENT DATE: 20200923
